FAERS Safety Report 7672653-6 (Version None)
Quarter: 2011Q3

REPORT INFORMATION
  Report Type: 
  Country: None (occurrence: None)
  Receive Date: 20110809
  Receipt Date: 20110802
  Transmission Date: 20111222
  Serious: Yes (Other)
  Sender: FDA-Public Use
  Company Number: US-BAYER-2011-013855

PATIENT
  Age: 29 Year
  Sex: Female

DRUGS (5)
  1. NAPROXEN [Concomitant]
     Dosage: UNK
     Dates: start: 20071218
  2. ACETAMINOPHEN [Concomitant]
     Dosage: 500 MG
     Dates: start: 20071218
  3. HYDROCODONE [Concomitant]
     Dosage: 5 MG
     Dates: start: 20071218
  4. YAZ [Suspect]
     Dosage: UNK
     Dates: start: 20060101, end: 20080101
  5. YASMIN [Suspect]
     Dosage: UNK
     Route: 048
     Dates: start: 20060101, end: 20080101

REACTIONS (7)
  - INJURY [None]
  - EMOTIONAL DISTRESS [None]
  - GENERAL PHYSICAL HEALTH DETERIORATION [None]
  - ANXIETY [None]
  - CHOLELITHIASIS [None]
  - GALLBLADDER INJURY [None]
  - PAIN [None]
